FAERS Safety Report 19679751 (Version 3)
Quarter: 2022Q3

REPORT INFORMATION
  Report Type: Report from Study
  Country: EG (occurrence: EG)
  Receive Date: 20210810
  Receipt Date: 20220827
  Transmission Date: 20221026
  Serious: Yes (Other)
  Sender: FDA-Public Use
  Company Number: EG-NOVARTISPH-NVSC2021EG177600

PATIENT
  Age: 25 Year
  Sex: Female

DRUGS (13)
  1. GILENYA [Suspect]
     Active Substance: FINGOLIMOD HYDROCHLORIDE
     Indication: Multiple sclerosis
     Dosage: 1 DOSAGE FORM, QOD
     Route: 048
     Dates: start: 202005
  2. GILENYA [Suspect]
     Active Substance: FINGOLIMOD HYDROCHLORIDE
     Dosage: 0.5 MG, QD
     Route: 048
     Dates: start: 20210615
  3. GILENYA [Suspect]
     Active Substance: FINGOLIMOD HYDROCHLORIDE
     Dosage: 0.5 MG, QD
     Route: 048
     Dates: start: 20210701, end: 20211120
  4. GILENYA [Suspect]
     Active Substance: FINGOLIMOD HYDROCHLORIDE
     Dosage: 1 DOSAGE FORM, QOD
     Route: 048
     Dates: start: 20220729
  5. OMEGA 3 PLUS [Concomitant]
     Indication: Neuropathy peripheral
     Dosage: UNK, QD
     Route: 065
     Dates: start: 2018
  6. OMEGA 3 PLUS [Concomitant]
     Indication: Supplementation therapy
     Dosage: 1 DF, QD
     Route: 048
     Dates: start: 20211101
  7. TRILEPTAL [Concomitant]
     Active Substance: OXCARBAZEPINE
     Indication: Product used for unknown indication
     Dosage: 300 MG, BID
     Route: 065
  8. DEVAROL [Concomitant]
     Indication: Vitamin D deficiency
     Dosage: 1 DF, QMO (1 AMPOULE)
     Route: 030
     Dates: start: 20210615
  9. CAL MAG [Concomitant]
     Indication: Blood calcium abnormal
     Dosage: 1 DF, BID
     Route: 048
     Dates: start: 20211101
  10. COBAL-FORTE [Concomitant]
     Indication: Immunodeficiency
     Dosage: 1 DF, QD
     Route: 048
     Dates: start: 20211101
  11. COBAL-FORTE [Concomitant]
     Dosage: 1 DF, QD (AFTER BREALFAST)
     Route: 065
     Dates: start: 202202
  12. CHONDROITIN SULFATE (BOVINE)\DIMETHYL SULFONE\GLUCOSAMINE SULFATE [Concomitant]
     Active Substance: CHONDROITIN SULFATE (BOVINE)\DIMETHYL SULFONE\GLUCOSAMINE SULFATE
     Indication: Osteoarthritis
     Dosage: 1 DOSAGE FORM, TID (STARTED 1 WEEK OR 10 DAYS AGO)
     Route: 065
  13. FOLIC ACID [Concomitant]
     Active Substance: FOLIC ACID
     Indication: Immunodeficiency
     Dosage: 1 DOSAGE FORM, QD (AFTER LUNCH)
     Route: 065
     Dates: start: 202206

REACTIONS (9)
  - Neck pain [Not Recovered/Not Resolved]
  - White blood cell count decreased [Unknown]
  - Arthralgia [Not Recovered/Not Resolved]
  - Pain [Not Recovered/Not Resolved]
  - Headache [Recovered/Resolved]
  - Fatigue [Recovered/Resolved]
  - Eye swelling [Not Recovered/Not Resolved]
  - Red blood cell count increased [Unknown]
  - Inappropriate schedule of product administration [Not Recovered/Not Resolved]

NARRATIVE: CASE EVENT DATE: 20210729
